FAERS Safety Report 4323826-1 (Version None)
Quarter: 2004Q1

REPORT INFORMATION
  Report Type: 
  Country: None (occurrence: None)
  Receive Date: 20040323
  Receipt Date: 20040310
  Transmission Date: 20041129
  Serious: Yes (Hospitalization, Other)
  Sender: FDA-Public Use
  Company Number: 2004-01043

PATIENT
  Age: 72 Year
  Sex: Male

DRUGS (2)
  1. NAPROXEN [Suspect]
     Indication: ARTHRALGIA
     Dosage: X 7 YEARS, ORAL
     Route: 048
  2. ASPIRIN [Suspect]
     Indication: ARTHRALGIA
     Dosage: X 20 YEARS, ORAL
     Route: 048

REACTIONS (1)
  - GASTROINTESTINAL ISCHAEMIA [None]
